FAERS Safety Report 11424203 (Version 1)
Quarter: 2015Q3

REPORT INFORMATION
  Report Type: Spontaneous
  Country: US (occurrence: US)
  Receive Date: 20150827
  Receipt Date: 20150827
  Transmission Date: 20151125
  Serious: Yes (Hospitalization)
  Sender: FDA-Public Use
  Company Number: US-JNJFOC-20150814010

PATIENT
  Age: 46 Year
  Sex: Female
  Weight: 44.91 kg

DRUGS (3)
  1. HEPARIN [Concomitant]
     Active Substance: HEPARIN SODIUM
     Route: 065
  2. ZOFRAN [Concomitant]
     Active Substance: ONDANSETRON HYDROCHLORIDE
     Indication: NAUSEA
     Route: 065
  3. REMICADE [Suspect]
     Active Substance: INFLIXIMAB
     Indication: RHEUMATOID ARTHRITIS
     Dosage: ONE INFUSION
     Route: 042
     Dates: start: 201110, end: 201110

REACTIONS (5)
  - Gait disturbance [Unknown]
  - Dyspnoea [Unknown]
  - Blood potassium increased [Recovered/Resolved]
  - Tachycardia [Unknown]
  - Dysstasia [Unknown]

NARRATIVE: CASE EVENT DATE: 201110
